FAERS Safety Report 9649954 (Version 2)
Quarter: 2013Q4

REPORT INFORMATION
  Report Type: Spontaneous
  Country: US (occurrence: US)
  Receive Date: 20131028
  Receipt Date: 20131028
  Transmission Date: 20140711
  Serious: No
  Sender: FDA-Public Use
  Company Number: US-PURDUE-USA-2013-0099918

PATIENT
  Sex: Male

DRUGS (1)
  1. OXYCONTIN (NDA 22-272) [Suspect]
     Indication: PAIN
     Dosage: 20 MG, BID
     Route: 048
     Dates: start: 20130201, end: 20130212

REACTIONS (10)
  - Drug withdrawal syndrome [Unknown]
  - Lung disorder [Unknown]
  - Pain [Unknown]
  - Hypoaesthesia oral [Recovering/Resolving]
  - Local swelling [Recovered/Resolved]
  - Lip swelling [Recovering/Resolving]
  - Dyspnoea [Unknown]
  - Dysphagia [Recovering/Resolving]
  - Pharyngeal oedema [Recovered/Resolved]
  - Malaise [Recovering/Resolving]
